FAERS Safety Report 19068928 (Version 1)
Quarter: 2021Q1

REPORT INFORMATION
  Report Type: Spontaneous
  Country: FR (occurrence: FR)
  Receive Date: 20210329
  Receipt Date: 20210329
  Transmission Date: 20210420
  Serious: Yes (Hospitalization, Other)
  Sender: FDA-Public Use
  Company Number: FR-PURDUE-USA-2021-0237209

PATIENT
  Age: 91 Year
  Sex: Female

DRUGS (5)
  1. NEO?MERCAZOLE [Suspect]
     Active Substance: CARBIMAZOLE
     Indication: HYPERTHYROIDISM
     Dosage: 2 UNIT, DAILY
     Route: 048
     Dates: start: 20201002, end: 20201005
  2. VENLAFAXINE [Suspect]
     Active Substance: VENLAFAXINE HYDROCHLORIDE
     Indication: MIXED ANXIETY AND DEPRESSIVE DISORDER
     Dosage: UNK
     Route: 048
  3. OXYNORM [Suspect]
     Active Substance: OXYCODONE HYDROCHLORIDE
     Indication: PAIN
     Dosage: UNK (STRENGTH 10MG/ML)
     Route: 048
     Dates: start: 20200929, end: 20201004
  4. OXYCODONE MYLAN [Suspect]
     Active Substance: OXYCODONE
     Indication: PAIN
     Dosage: 1 UNIT, DAILY
     Route: 048
     Dates: start: 20201002, end: 20201004
  5. CEFTRIAXONE. [Suspect]
     Active Substance: CEFTRIAXONE
     Indication: KLEBSIELLA INFECTION
     Dosage: 1 UNIT, DAILY
     Route: 042
     Dates: start: 20200926, end: 20201002

REACTIONS (2)
  - Myoclonus [Recovered/Resolved]
  - Encephalopathy [Recovered/Resolved]

NARRATIVE: CASE EVENT DATE: 20201004
